FAERS Safety Report 7240215-0 (Version None)
Quarter: 2011Q1

REPORT INFORMATION
  Report Type: 
  Country: None (occurrence: None)
  Receive Date: 20110113
  Receipt Date: 20110110
  Transmission Date: 20110831
  Serious: Yes (Hospitalization)
  Sender: FDA-Public Use
  Company Number: SP03387

PATIENT
  Age: 56 Year
  Sex: Female
  Weight: 70.3075 kg

DRUGS (1)
  1. OSMOPREP [Suspect]
     Indication: COLONOSCOPY
     Dosage: (20 TABLETS), ORAL
     Route: 048
     Dates: start: 20101221, end: 20101221

REACTIONS (5)
  - PAIN [None]
  - HEART RATE IRREGULAR [None]
  - BLOOD SODIUM DECREASED [None]
  - MUSCLE SPASMS [None]
  - BLOOD POTASSIUM DECREASED [None]
